FAERS Safety Report 6801080-6 (Version None)
Quarter: 2010Q2

REPORT INFORMATION
  Report Type: 
  Country: None (occurrence: None)
  Receive Date: 20100629
  Receipt Date: 20100624
  Transmission Date: 20101027
  Serious: Yes (Life-Threatening, Hospitalization, Disabling, Other)
  Sender: FDA-Public Use
  Company Number: CH-BAYER-201029953GPV

PATIENT
  Age: 49 Year
  Sex: Female

DRUGS (1)
  1. ASPIRIN [Suspect]
     Indication: DRUG USE FOR UNKNOWN INDICATION
     Route: 048
     Dates: end: 20100531

REACTIONS (5)
  - CEREBRAL HAEMORRHAGE [None]
  - DIPLOPIA [None]
  - HYPERTENSIVE CRISIS [None]
  - NYSTAGMUS [None]
  - PARAESTHESIA ORAL [None]
